FAERS Safety Report 5954734-8 (Version None)
Quarter: 2008Q4

REPORT INFORMATION
  Report Type: 
  Country: None (occurrence: None)
  Receive Date: 20081117
  Receipt Date: 20081104
  Transmission Date: 20090506
  Serious: Yes (Other)
  Sender: FDA-Public Use
  Company Number: DE-AMGEN-UK315758

PATIENT
  Age: 63 Year
  Sex: Female

DRUGS (2)
  1. NEULASTA [Suspect]
     Indication: DRUG USE FOR UNKNOWN INDICATION
     Route: 058
     Dates: start: 20081024, end: 20081024
  2. TAXOTERE [Concomitant]
     Dates: start: 20081022

REACTIONS (8)
  - ABDOMINAL PAIN UPPER [None]
  - DYSGEUSIA [None]
  - FATIGUE [None]
  - GLOSSODYNIA [None]
  - MUSCLE SPASMS [None]
  - NAUSEA [None]
  - PAIN IN EXTREMITY [None]
  - SWOLLEN TONGUE [None]
